FAERS Safety Report 19393111 (Version 2)
Quarter: 2021Q3

REPORT INFORMATION
  Report Type: Spontaneous
  Country: SE (occurrence: SE)
  Receive Date: 20210609
  Receipt Date: 20210720
  Transmission Date: 20211014
  Serious: Yes (Other)
  Sender: FDA-Public Use
  Company Number: NVSC2021SE123097

PATIENT
  Age: 18 Year

DRUGS (1)
  1. MONTELUKAST [Suspect]
     Active Substance: MONTELUKAST SODIUM
     Indication: PRODUCT USED FOR UNKNOWN INDICATION
     Dosage: UNK
     Route: 065
     Dates: start: 202104, end: 202105

REACTIONS (3)
  - Mental disorder [Recovered/Resolved]
  - Asthma [Recovered/Resolved]
  - Multiple allergies [Recovered/Resolved]

NARRATIVE: CASE EVENT DATE: 202001
